FAERS Safety Report 7963730-0 (Version None)
Quarter: 2011Q4

REPORT INFORMATION
  Report Type: 
  Country: None (occurrence: None)
  Receive Date: 20111208
  Receipt Date: 20111102
  Transmission Date: 20120403
  Serious: No
  Sender: FDA-Public Use
  Company Number: US-BAYER-2011-108152

PATIENT
  Age: 28 Year
  Sex: Female
  Weight: 73 kg

DRUGS (2)
  1. ALEVE (CAPLET) [Suspect]
     Indication: TOOTHACHE
     Dosage: UNK
     Route: 048
     Dates: end: 20111102
  2. AMOXICILLIN [Concomitant]

REACTIONS (1)
  - NO ADVERSE EVENT [None]
